FAERS Safety Report 9340722 (Version 1)
Quarter: 2013Q2

REPORT INFORMATION
  Report Type: Spontaneous
  Country: JP (occurrence: JP)
  Receive Date: 20130610
  Receipt Date: 20130610
  Transmission Date: 20140414
  Serious: Yes (Hospitalization, Other)
  Sender: FDA-Public Use
  Company Number: JP-GLAXOSMITHKLINE-B0897933A

PATIENT
  Age: 53 Year
  Sex: Female
  Weight: 48 kg

DRUGS (3)
  1. HYCAMTIN [Suspect]
     Indication: OVARIAN CANCER RECURRENT
     Dosage: 1.4MGM2 PER DAY
     Route: 042
     Dates: start: 20120403
  2. PRIMPERAN [Concomitant]
     Route: 048
     Dates: start: 20120403, end: 20120515
  3. DEXART [Concomitant]
     Indication: VOMITING
     Dosage: 6.6MG PER DAY
     Route: 065
     Dates: start: 20120403, end: 20120518

REACTIONS (4)
  - Decreased appetite [Recovering/Resolving]
  - Fatigue [Recovering/Resolving]
  - White blood cell count decreased [Recovering/Resolving]
  - Neutrophil count decreased [Recovering/Resolving]
